FAERS Safety Report 12295701 (Version 1)
Quarter: 2016Q2

REPORT INFORMATION
  Report Type: Spontaneous
  Country: BR (occurrence: BR)
  Receive Date: 20160422
  Receipt Date: 20160422
  Transmission Date: 20160815
  Serious: Yes (Other)
  Sender: FDA-Public Use
  Company Number: BR-AMGEN-BRASP2016037241

PATIENT
  Age: 77 Year
  Sex: Female
  Weight: 49 kg

DRUGS (6)
  1. PANTOPRAZOLE [Concomitant]
     Active Substance: PANTOPRAZOLE SODIUM
     Indication: ABDOMINAL DISCOMFORT
     Dosage: 20 MG, DAILY
  2. DORFLEX [Concomitant]
     Active Substance: CAFFEINE\DIPYRONE\ORPHENADRINE
     Indication: PAIN
     Dosage: AS NEEDED
  3. VITAMIN D                          /00107901/ [Concomitant]
     Active Substance: ERGOCALCIFEROL
     Dosage: 1 DF, WEEKLY
  4. LEFLUNOMIDE. [Concomitant]
     Active Substance: LEFLUNOMIDE
     Dosage: 20 MG, DAILY
  5. ENBREL [Suspect]
     Active Substance: ETANERCEPT
     Indication: RHEUMATOID ARTHRITIS
     Dosage: 50 MG, ONCE WEEKLY
     Route: 058
     Dates: start: 201509
  6. PANTOPRAZOLE [Concomitant]
     Active Substance: PANTOPRAZOLE SODIUM
     Dosage: UNK

REACTIONS (13)
  - Allergic cough [Not Recovered/Not Resolved]
  - Intentional product misuse [Not Recovered/Not Resolved]
  - Peripheral swelling [Not Recovered/Not Resolved]
  - Arrhythmia [Unknown]
  - Mobility decreased [Not Recovered/Not Resolved]
  - Pneumonia [Recovered/Resolved]
  - Drug effect incomplete [Not Recovered/Not Resolved]
  - Dyspnoea [Unknown]
  - Nasopharyngitis [Unknown]
  - Secretion discharge [Recovered/Resolved]
  - Productive cough [Recovered/Resolved]
  - Influenza [Recovered/Resolved]
  - Malaise [Unknown]

NARRATIVE: CASE EVENT DATE: 201603
